FAERS Safety Report 7924235-6 (Version None)
Quarter: 2011Q4

REPORT INFORMATION
  Report Type: 
  Country: None (occurrence: None)
  Receive Date: 20111117
  Receipt Date: 20110215
  Transmission Date: 20120403
  Serious: No
  Sender: FDA-Public Use
  Company Number: US-AMGEN-USASP2011008780

PATIENT
  Age: 53 Year
  Sex: Female
  Weight: 69.4 kg

DRUGS (18)
  1. TRAZODONE HCL [Concomitant]
     Dosage: 50 MG, UNK
  2. ADRENAL [Concomitant]
     Dosage: 80 MG, UNK
  3. ZYRTEC DAIICHI [Concomitant]
     Dosage: 10 MG, UNK
  4. FISH OIL [Concomitant]
  5. MULTIVITAMIN                       /00097801/ [Concomitant]
  6. ENBREL [Suspect]
     Indication: PRODUCT USED FOR UNKNOWN INDICATION
     Dosage: 50 MG, QWK
     Route: 058
  7. KLONOPIN [Concomitant]
     Dosage: 0.5 MG, UNK
  8. ESTRADIOL                          /00045402/ [Concomitant]
     Dosage: 0.5 MG, UNK
  9. TRIAMTEREEN/HYDROCHLOOTTHIAZIDE [Concomitant]
     Dosage: UNK
  10. TRAMADOL HCL [Concomitant]
     Dosage: 50 MG, UNK
  11. AMPHETAMINE AND DEXTROAMPHETAMINE SALTS [Concomitant]
     Dosage: 10 MG, UNK
  12. WELLBUTRIN [Concomitant]
     Dosage: 75 MG, UNK
  13. TOPROL-XL [Concomitant]
     Dosage: 25 MG, UNK
  14. CLONIDINE [Concomitant]
     Dosage: 0.1 MG, UNK
  15. SELENIUM [Concomitant]
     Dosage: 25 A?G, UNK
  16. FLEXERIL [Concomitant]
     Dosage: 5 MG, UNK
  17. CHROMIUN [Concomitant]
     Dosage: 1 MG, UNK
  18. XOPENEX HFA [Concomitant]

REACTIONS (3)
  - CONSTIPATION [None]
  - NAUSEA [None]
  - ABDOMINAL PAIN [None]
